FAERS Safety Report 9011405 (Version 1)
Quarter: 2013Q1

REPORT INFORMATION
  Report Type: Spontaneous
  Country: US (occurrence: US)
  Receive Date: 20130108
  Receipt Date: 20130108
  Transmission Date: 20140127
  Serious: Yes (Other)
  Sender: FDA-Public Use
  Company Number: US-PURDUE-USA-2012-0097283

PATIENT
  Age: 22 Year
  Sex: Male

DRUGS (1)
  1. BETADINE SOLUTION SWABSTICKS [Suspect]
     Indication: WOUND DRAINAGE
     Dosage: 10% SOLUTION
     Route: 061
     Dates: start: 20121116

REACTIONS (7)
  - Urticaria [Unknown]
  - Swelling face [Unknown]
  - Insomnia [Unknown]
  - Flushing [Unknown]
  - Chemical burn of skin [Unknown]
  - Skin exfoliation [Unknown]
  - Wound dehiscence [Unknown]
